FAERS Safety Report 14169635 (Version 1)
Quarter: 2017Q4

REPORT INFORMATION
  Report Type: Spontaneous
  Country: US (occurrence: US)
  Receive Date: 20171107
  Receipt Date: 20171107
  Transmission Date: 20180321
  Serious: Yes (Life-Threatening, Hospitalization, Disabling)
  Sender: FDA-Public Use
  Company Number: None

PATIENT
  Age: 16 Year
  Sex: Female
  Weight: 120.15 kg

DRUGS (2)
  1. TARINA FE 1/20 [Suspect]
     Active Substance: ETHINYL ESTRADIOL\NORETHINDRONE ACETATE
     Indication: MENSTRUATION IRREGULAR
     Dates: start: 20160224, end: 20160303
  2. METFORMIN [Concomitant]
     Active Substance: METFORMIN HYDROCHLORIDE

REACTIONS (8)
  - Blindness unilateral [None]
  - Amnesia [None]
  - Fall [None]
  - Migraine [None]
  - Vomiting [None]
  - Loss of consciousness [None]
  - Retinal disorder [None]
  - Intracranial venous sinus thrombosis [None]

NARRATIVE: CASE EVENT DATE: 20160304
